FAERS Safety Report 25305683 (Version 1)
Quarter: 2025Q2

REPORT INFORMATION
  Report Type: Spontaneous
  Country: PE (occurrence: PE)
  Receive Date: 20250513
  Receipt Date: 20250513
  Transmission Date: 20250717
  Serious: Yes (Hospitalization, Other)
  Sender: RANBAXY
  Company Number: PE-SUN PHARMACEUTICAL INDUSTRIES LTD-2025RR-507350

PATIENT
  Age: 67 Year
  Sex: Male

DRUGS (2)
  1. CEFTRIAXONE [Suspect]
     Active Substance: CEFTRIAXONE
     Indication: Brain abscess
     Dosage: 2 GRAM, BID
     Route: 042
  2. METRONIDAZOLE [Suspect]
     Active Substance: METRONIDAZOLE
     Indication: Brain abscess
     Dosage: 500 MILLIGRAM, TID
     Route: 042

REACTIONS (10)
  - Neurotoxicity [Recovering/Resolving]
  - Generalised tonic-clonic seizure [Recovering/Resolving]
  - Dysstasia [Recovering/Resolving]
  - Ataxia [Recovering/Resolving]
  - Loss of proprioception [Unknown]
  - Decreased vibratory sense [Unknown]
  - Dysdiadochokinesis [Recovering/Resolving]
  - Limb asymmetry [Recovering/Resolving]
  - Hyperreflexia [Recovering/Resolving]
  - Nausea [Recovering/Resolving]
